FAERS Safety Report 6153601-7 (Version None)
Quarter: 2009Q2

REPORT INFORMATION
  Report Type: 
  Country: None (occurrence: None)
  Receive Date: 20090413
  Receipt Date: 20090401
  Transmission Date: 20091009
  Serious: Yes (Other)
  Sender: FDA-Public Use
  Company Number: GB-PFIZER INC-2009191630

PATIENT

DRUGS (2)
  1. CHAMPIX [Suspect]
     Dosage: 1 MG, UNK
     Route: 048
     Dates: start: 20080705, end: 20080815
  2. IMPLANON [Concomitant]
     Dosage: UNK
     Route: 058
     Dates: start: 20080506

REACTIONS (1)
  - VAGINAL HAEMORRHAGE [None]
